FAERS Safety Report 7571106-3 (Version None)
Quarter: 2011Q2

REPORT INFORMATION
  Report Type: 
  Country: None (occurrence: None)
  Receive Date: 20110624
  Receipt Date: 20110615
  Transmission Date: 20111010
  Serious: Yes (Hospitalization)
  Sender: FDA-Public Use
  Company Number: US-ACTELION-A-US2011-50487

PATIENT

DRUGS (2)
  1. TRACLEER [Suspect]
     Indication: PULMONARY ARTERIAL HYPERTENSION
     Dosage: UNK
     Route: 048
     Dates: start: 20100504
  2. CALCIUM CHANNEL BLOCKERS [Concomitant]
     Dosage: UNK

REACTIONS (3)
  - FALL [None]
  - JOINT INJURY [None]
  - SYNCOPE [None]
